FAERS Safety Report 7497536-6 (Version None)
Quarter: 2011Q2

REPORT INFORMATION
  Report Type: 
  Country: None (occurrence: None)
  Receive Date: 20110523
  Receipt Date: 20110511
  Transmission Date: 20111010
  Serious: Yes (Hospitalization)
  Sender: FDA-Public Use
  Company Number: PHHY2011ES40193

PATIENT
  Age: 43 Year
  Sex: Male

DRUGS (5)
  1. DISTRANEURINE [Concomitant]
  2. AFINITOR [Suspect]
     Dosage: 10 MG, UNK
     Dates: start: 20110505
  3. ACETAMINOPHEN [Concomitant]
  4. SOMATOLINE [Concomitant]
  5. FENTANYL [Concomitant]

REACTIONS (2)
  - HYPERGLYCAEMIA [None]
  - LACTIC ACIDOSIS [None]
